FAERS Safety Report 4734503-7 (Version None)
Quarter: 2005Q3

REPORT INFORMATION
  Report Type: 
  Country: None (occurrence: None)
  Receive Date: 20050804
  Receipt Date: 20050705
  Transmission Date: 20060218
  Serious: Yes (Death)
  Sender: FDA-Public Use
  Company Number: JP-SANOFI-SYNTHELABO-F01200501155

PATIENT
  Age: 57 Year
  Sex: Male
  Weight: 88 kg

DRUGS (7)
  1. OXALIPLATIN [Suspect]
     Indication: RECTAL CANCER
     Dosage: 142MG/BODY=75.5MG/M2 AS INFUSION ON DAY 1
     Route: 042
     Dates: start: 20050621, end: 20050621
  2. FLUOROURACIL [Suspect]
     Dosage: 650MG/BODY=345.7MG/M2 IN BOLUS THEN 1000MG/BODY=531.9MG/M2 AS CONTINUOUS INFUSION ON DAYS 1 AND 2
     Route: 042
     Dates: start: 20050621, end: 20050622
  3. CALCIUM LEVOFOLINATE [Suspect]
     Dosage: 150AMG/BODY=79.8MG/M2 AS INFUSION ON DAYS 1 AND 2
     Route: 042
     Dates: start: 20050621, end: 20050622
  4. XYLOCAINE [Concomitant]
     Indication: CARDIO-RESPIRATORY ARREST
     Route: 042
     Dates: start: 20050626, end: 20050626
  5. BOSMIN [Concomitant]
     Indication: CARDIO-RESPIRATORY ARREST
     Route: 042
     Dates: start: 20050626, end: 20050626
  6. ATROPINE SULFATE [Concomitant]
     Indication: CARDIO-RESPIRATORY ARREST
     Route: 042
     Dates: start: 20050626, end: 20050626
  7. DOPAMINE HCL [Concomitant]
     Indication: CARDIO-RESPIRATORY ARREST
     Route: 041
     Dates: start: 20050626, end: 20050626

REACTIONS (7)
  - ACTIVATED PARTIAL THROMBOPLASTIN TIME PROLONGED [None]
  - BLOOD ALKALINE PHOSPHATASE INCREASED [None]
  - BLOOD POTASSIUM INCREASED [None]
  - BLOOD UREA INCREASED [None]
  - CARDIO-RESPIRATORY ARREST [None]
  - HAEMOGLOBIN DECREASED [None]
  - PULMONARY EMBOLISM [None]
